FAERS Safety Report 10460455 (Version 37)
Quarter: 2024Q4

REPORT INFORMATION
  Report Type: Report from Study
  Country: CA (occurrence: CA)
  Receive Date: 20140917
  Receipt Date: 20241121
  Transmission Date: 20250114
  Serious: Yes (Other)
  Sender: ROCHE
  Company Number: CA-ROCHE-1344343

PATIENT
  Age: 55 Year
  Sex: Female
  Weight: 78 kg

DRUGS (59)
  1. ACTEMRA [Suspect]
     Active Substance: TOCILIZUMAB
     Indication: Rheumatoid arthritis
     Dosage: DRUG DOSE FIRST ADMINISTERED IS 680 MG MILLIGRAM(S)
     Route: 042
     Dates: end: 20160909
  2. ACTEMRA [Suspect]
     Active Substance: TOCILIZUMAB
     Dosage: DRUG DOSE FIRST ADMINISTERED IS 565 MG MILLIGRAM(S)
     Route: 042
     Dates: start: 20190509, end: 20190509
  3. ACTEMRA [Suspect]
     Active Substance: TOCILIZUMAB
     Dosage: DRUG DOSE FIRST ADMINISTERED IS 568 MG MILLIGRAM(S)
     Route: 042
     Dates: start: 20190606, end: 20190606
  4. ACTEMRA [Suspect]
     Active Substance: TOCILIZUMAB
     Dosage: DRUG DOSE FIRST ADMINISTERED IS 580 MG MILLIGRAM(S)
     Route: 042
     Dates: start: 20190704, end: 20190801
  5. ACTEMRA [Suspect]
     Active Substance: TOCILIZUMAB
     Dosage: DRUG DOSE FIRST ADMINISTERED IS 586 MG MILLIGRAM(S)
     Route: 042
     Dates: start: 20200312, end: 20200312
  6. ACTEMRA [Suspect]
     Active Substance: TOCILIZUMAB
     Dosage: DRUG DOSE FIRST ADMINISTERED IS 577.6 MG MILLIGRAM(S)
     Route: 042
     Dates: start: 20190829, end: 20190926
  7. ACTEMRA [Suspect]
     Active Substance: TOCILIZUMAB
     Dosage: DRUG DOSE FIRST ADMINISTERED IS 568 MG MILLIGRAM(S)
     Route: 042
     Dates: start: 20191024, end: 20191024
  8. ACTEMRA [Suspect]
     Active Substance: TOCILIZUMAB
     Dosage: DRUG DOSE FIRST ADMINISTERED IS 588 MG MILLIGRAM(S)
     Route: 042
     Dates: start: 20191121, end: 20191121
  9. ACTEMRA [Suspect]
     Active Substance: TOCILIZUMAB
     Dosage: DRUG DOSE FIRST ADMINISTERED IS 576 MG MILLIGRAM(S)
     Route: 042
     Dates: start: 20191219, end: 20191219
  10. ACTEMRA [Suspect]
     Active Substance: TOCILIZUMAB
     Dosage: DRUG DOSE FIRST ADMINISTERED IS 584 MG MILLIGRAM(S)
     Route: 042
     Dates: start: 20200116, end: 20200116
  11. ACTEMRA [Suspect]
     Active Substance: TOCILIZUMAB
     Dosage: DRUG DOSE FIRST ADMINISTERED IS 591 MG MILLIGRAM(S)
     Route: 042
     Dates: start: 20200213, end: 20200213
  12. ACTEMRA [Suspect]
     Active Substance: TOCILIZUMAB
     Dosage: DRUG DOSE FIRST ADMINISTERED IS 632 MG MILLIGRAM(S)
     Route: 042
     Dates: start: 20130905, end: 20140116
  13. ACTEMRA [Suspect]
     Active Substance: TOCILIZUMAB
     Dosage: DRUG DOSE FIRST ADMINISTERED IS 595 MG MILLIGRAM(S)
     Route: 042
     Dates: start: 20200409, end: 20200409
  14. ACTEMRA [Suspect]
     Active Substance: TOCILIZUMAB
     Dosage: DRUG DOSE FIRST ADMINISTERED IS 568 MG MILLIGRAM(S)
     Route: 042
     Dates: start: 20200507, end: 20200507
  15. ACTEMRA [Suspect]
     Active Substance: TOCILIZUMAB
     Dosage: DRUG DOSE FIRST ADMINISTERED IS 596.8 MG MILLIGRAM(S)
     Route: 042
     Dates: start: 20200604
  16. ACTEMRA [Suspect]
     Active Substance: TOCILIZUMAB
     Dosage: DRUG DOSE FIRST ADMINISTERED IS 590.4 MG MILLIGRAM(S)
     Route: 042
     Dates: start: 2020, end: 20200730
  17. ACTEMRA [Suspect]
     Active Substance: TOCILIZUMAB
     Dosage: DRUG DOSE FIRST ADMINISTERED IS 568 MG MILLIGRAM(S)
     Route: 042
     Dates: start: 20200827, end: 20200827
  18. ACTEMRA [Suspect]
     Active Substance: TOCILIZUMAB
     Dosage: DRUG DOSE FIRST ADMINISTERED IS 578.4 MG MILLIGRAM(S)
     Route: 042
     Dates: start: 20200924, end: 20200924
  19. ACTEMRA [Suspect]
     Active Substance: TOCILIZUMAB
     Dosage: DRUG DOSE FIRST ADMINISTERED IS 548 MG MILLIGRAM(S)
     Route: 042
     Dates: start: 20201022, end: 20201022
  20. ACTEMRA [Suspect]
     Active Substance: TOCILIZUMAB
     Dosage: DRUG DOSE FIRST ADMINISTERED IS 556 MG MILLIGRAM(S)
     Route: 042
     Dates: start: 20201119, end: 20210115
  21. ACTEMRA [Suspect]
     Active Substance: TOCILIZUMAB
     Dosage: DRUG DOSE FIRST ADMINISTERED IS 600 MG MILLIGRAM(S)?MOREDOSAGEINFO IS B2086B13/2021-NOV-30
     Route: 042
     Dates: start: 20210211, end: 20210408
  22. ACTEMRA [Suspect]
     Active Substance: TOCILIZUMAB
     Dosage: DRUG DOSE FIRST ADMINISTERED IS 580 MG MILLIGRAM(S)
     Route: 042
     Dates: start: 20161007, end: 20190411
  23. ACTEMRA [Suspect]
     Active Substance: TOCILIZUMAB
     Dosage: DRUG DOSE FIRST ADMINISTERED IS 550 MG MILLIGRAM(S)
     Route: 042
     Dates: start: 20210506, end: 20210506
  24. ACTEMRA [Suspect]
     Active Substance: TOCILIZUMAB
     Dosage: DRUG DOSE FIRST ADMINISTERED IS 550 MG MILLIGRAM(S)?MOREDOSAGEINFO IS B5023B05 30-APR-2026
     Route: 042
     Dates: start: 20210824
  25. ACTEMRA [Suspect]
     Active Substance: TOCILIZUMAB
     Route: 042
     Dates: start: 20190901
  26. ACTEMRA [Suspect]
     Active Substance: TOCILIZUMAB
     Route: 042
  27. ACTEMRA [Suspect]
     Active Substance: TOCILIZUMAB
     Route: 042
  28. ACTEMRA [Suspect]
     Active Substance: TOCILIZUMAB
     Route: 042
  29. ACTEMRA [Suspect]
     Active Substance: TOCILIZUMAB
     Route: 042
  30. ACTEMRA [Suspect]
     Active Substance: TOCILIZUMAB
     Route: 042
  31. ACTEMRA [Suspect]
     Active Substance: TOCILIZUMAB
     Route: 042
  32. ACTEMRA [Suspect]
     Active Substance: TOCILIZUMAB
     Route: 042
  33. ACTEMRA [Suspect]
     Active Substance: TOCILIZUMAB
     Route: 042
  34. ACTEMRA [Suspect]
     Active Substance: TOCILIZUMAB
     Route: 042
  35. ACTEMRA [Suspect]
     Active Substance: TOCILIZUMAB
     Route: 042
  36. ACTEMRA [Suspect]
     Active Substance: TOCILIZUMAB
     Route: 042
  37. ACTEMRA [Suspect]
     Active Substance: TOCILIZUMAB
     Route: 042
  38. ACTEMRA [Suspect]
     Active Substance: TOCILIZUMAB
     Route: 042
  39. ACTEMRA [Suspect]
     Active Substance: TOCILIZUMAB
     Route: 042
  40. ACTEMRA [Suspect]
     Active Substance: TOCILIZUMAB
     Route: 042
  41. ACTEMRA [Suspect]
     Active Substance: TOCILIZUMAB
     Route: 042
  42. ACTEMRA [Suspect]
     Active Substance: TOCILIZUMAB
     Route: 042
  43. ACTEMRA ACTPEN [Suspect]
     Active Substance: TOCILIZUMAB
     Indication: Rheumatoid arthritis
     Dosage: ACTPEN (AUTOINJECTOR)
     Route: 058
  44. FLAGYL [Suspect]
     Active Substance: METRONIDAZOLE\METRONIDAZOLE HYDROCHLORIDE
     Indication: Product used for unknown indication
     Route: 065
  45. ALEVE [Concomitant]
     Active Substance: NAPROXEN SODIUM
  46. ALPRAZOLAM [Concomitant]
     Active Substance: ALPRAZOLAM
  47. FOLIC ACID [Concomitant]
     Active Substance: FOLIC ACID
  48. OXYBUTYNIN [Concomitant]
     Active Substance: OXYBUTYNIN
  49. OLANZAPINE [Concomitant]
     Active Substance: OLANZAPINE
     Dosage: DRUG DOSE FIRST ADMINISTERED IS 5 MG MILLIGRAM(S)
  50. OLANZAPINE [Concomitant]
     Active Substance: OLANZAPINE
     Dosage: DRUG DOSE FIRST ADMINISTERED IS 2.5 MG MILLIGRAM(S)
  51. OLANZAPINE [Concomitant]
     Active Substance: OLANZAPINE
     Dosage: 5 MG AND 2.5 MG
  52. TRAZODONE [Concomitant]
     Active Substance: TRAZODONE HYDROCHLORIDE
  53. VOLTAREN [Concomitant]
     Active Substance: DICLOFENAC SODIUM
  54. GRAVOL [Concomitant]
     Active Substance: DIMENHYDRINATE
  55. TYLENOL [Concomitant]
     Active Substance: ACETAMINOPHEN
  56. HYDROXYCHLOROQUINE [Concomitant]
     Active Substance: HYDROXYCHLOROQUINE
  57. LEFLUNOMIDE [Concomitant]
     Active Substance: LEFLUNOMIDE
  58. METHOTREXATE [Concomitant]
     Active Substance: METHOTREXATE
  59. TYLENOL NIGHTTIME [Concomitant]

REACTIONS (40)
  - Weight increased [Unknown]
  - Diarrhoea haemorrhagic [Not Recovered/Not Resolved]
  - Transient ischaemic attack [Unknown]
  - Dysphagia [Not Recovered/Not Resolved]
  - Contusion [Unknown]
  - Vasculitis [Unknown]
  - Bronchitis [Not Recovered/Not Resolved]
  - Diverticulitis [Recovered/Resolved]
  - Nausea [Not Recovered/Not Resolved]
  - Vomiting [Not Recovered/Not Resolved]
  - Pyrexia [Recovered/Resolved]
  - Influenza [Recovered/Resolved]
  - Tooth fracture [Not Recovered/Not Resolved]
  - Tooth infection [Unknown]
  - Stomatitis [Recovering/Resolving]
  - Lethargy [Recovering/Resolving]
  - Myalgia [Recovering/Resolving]
  - Tooth abscess [Unknown]
  - Weight decreased [Unknown]
  - Oropharyngeal pain [Unknown]
  - Injection site mass [Recovering/Resolving]
  - Diarrhoea [Recovered/Resolved]
  - Pain [Recovered/Resolved]
  - Headache [Recovered/Resolved]
  - Fatigue [Recovered/Resolved]
  - Rhinorrhoea [Recovering/Resolving]
  - Pain [Not Recovered/Not Resolved]
  - Paraesthesia [Not Recovered/Not Resolved]
  - Rash [Not Recovered/Not Resolved]
  - Lyme disease [Recovered/Resolved]
  - Infection [Unknown]
  - Abdominal pain upper [Not Recovered/Not Resolved]
  - Cystitis [Unknown]
  - Drug hypersensitivity [Unknown]
  - Urticaria [Unknown]
  - Gastrointestinal disorder [Unknown]
  - Spinal osteoarthritis [Unknown]
  - Myelopathy [Unknown]
  - Oxygen saturation decreased [Unknown]
  - Blood pressure fluctuation [Unknown]

NARRATIVE: CASE EVENT DATE: 20140101
